FAERS Safety Report 5212160-3 (Version None)
Quarter: 2007Q1

REPORT INFORMATION
  Report Type: 
  Country: None (occurrence: None)
  Receive Date: 20070118
  Receipt Date: 20070110
  Transmission Date: 20070707
  Serious: Yes (Other)
  Sender: FDA-Public Use
  Company Number: US-ROCHE-478206

PATIENT
  Sex: Female

DRUGS (1)
  1. BONIVA [Suspect]
     Route: 048
     Dates: start: 20061206

REACTIONS (3)
  - APPENDICITIS [None]
  - BLOOD CALCIUM DECREASED [None]
  - HEADACHE [None]
